FAERS Safety Report 7313558-X (Version None)
Quarter: 2011Q1

REPORT INFORMATION
  Report Type: 
  Country: None (occurrence: None)
  Receive Date: 20110225
  Receipt Date: 20110216
  Transmission Date: 20110831
  Serious: Yes (Hospitalization)
  Sender: FDA-Public Use
  Company Number: FR-TEVA-268095ISR

PATIENT
  Sex: Male
  Weight: 93 kg

DRUGS (10)
  1. DEXAMETHASONE [Suspect]
     Indication: MULTIPLE MYELOMA
     Dates: start: 20090922
  2. ASPIRIN [Concomitant]
     Indication: THROMBOSIS PROPHYLAXIS
     Dates: start: 20090922
  3. LENALIDOMIDE [Suspect]
     Route: 048
     Dates: start: 20100923, end: 20101013
  4. FONDAPARINUX SODIUM [Concomitant]
     Indication: THROMBOSIS PROPHYLAXIS
     Dates: start: 20100801
  5. LENALIDOMIDE [Suspect]
     Route: 048
     Dates: start: 20100922
  6. IRBESARTAN [Concomitant]
     Indication: HYPERTENSION
  7. PERINDOPRIL [Concomitant]
     Dates: start: 20090321
  8. DEXAMETHASONE [Suspect]
     Dates: start: 20100923, end: 20101013
  9. ACETYLSALICYLATE LYSINE [Concomitant]
     Indication: THROMBOSIS PROPHYLAXIS
  10. CELIPROLOL [Concomitant]
     Indication: HYPERTENSION
     Dates: start: 20070401

REACTIONS (1)
  - CEREBRAL INFARCTION [None]
